FAERS Safety Report 8996847 (Version 1)
Quarter: 2012Q4

REPORT INFORMATION
  Report Type: Spontaneous
  Country: US (occurrence: None)
  Receive Date: 20121228
  Receipt Date: 20121228
  Transmission Date: 20130627
  Serious: Yes (Other)
  Sender: FDA-Public Use
  Company Number: None

PATIENT
  Age: 74 Year
  Sex: Female
  Weight: 52.16 kg

DRUGS (1)
  1. PROLIA [Suspect]
     Dosage: 60mg  6 month  subcut
     Route: 058
     Dates: start: 20120727

REACTIONS (2)
  - Rash erythematous [None]
  - Hypoaesthesia oral [None]
